FAERS Safety Report 5046427-9 (Version None)
Quarter: 2006Q3

REPORT INFORMATION
  Report Type: 
  Country: None (occurrence: None)
  Receive Date: 20060710
  Receipt Date: 20051130
  Transmission Date: 20061208
  Serious: Yes (Hospitalization, Congenital Anomaly)
  Sender: FDA-Public Use
  Company Number: 8013248

PATIENT
  Sex: Male

DRUGS (8)
  1. PAXIL CR [Suspect]
     Indication: DEPRESSION
     Dosage: 37.5MG PER DAY
  2. ZYRTEC [Suspect]
     Indication: MULTIPLE ALLERGIES
     Dosage: 10MG PER DAY
  3. KEPPRA [Suspect]
     Dosage: 2000MG PER DAY
     Dates: end: 20050516
  4. DILANTIN [Suspect]
     Indication: EPILEPSY
  5. SEROQUEL [Suspect]
     Indication: SLEEP DISORDER
     Dosage: 50MG AS REQUIRED
  6. FOLIC ACID [Suspect]
     Indication: ANAEMIA
     Dosage: 4MG PER DAY
  7. CITRUCEL [Suspect]
     Indication: DRUG USE FOR UNKNOWN INDICATION
     Route: 065
  8. METHYLCELLULOSE [Suspect]

REACTIONS (7)
  - ADRENAL INSUFFICIENCY [None]
  - ADRENOGENITAL SYNDROME [None]
  - ARNOLD-CHIARI MALFORMATION [None]
  - DEVELOPMENTAL DELAY [None]
  - DRUG EXPOSURE DURING PREGNANCY [None]
  - MATERNAL CONDITION AFFECTING FOETUS [None]
  - PREMATURE BABY [None]
